FAERS Safety Report 10739294 (Version 1)
Quarter: 2015Q1

REPORT INFORMATION
  Report Type: Report from Study
  Country: FR (occurrence: FR)
  Receive Date: 20150126
  Receipt Date: 20150126
  Transmission Date: 20150721
  Serious: Yes (Death)
  Sender: FDA-Public Use
  Company Number: FR-PFIZER INC-FR-WYE-G05137809

PATIENT
  Age: 60 Year
  Sex: Female
  Weight: 60 kg

DRUGS (14)
  1. PERFALGAN [Concomitant]
     Active Substance: ACETAMINOPHEN
     Dosage: 3 G, DAILY
     Route: 058
     Dates: start: 20080724, end: 20080728
  2. MYLOTARG [Suspect]
     Active Substance: GEMTUZUMAB OZOGAMICIN
     Indication: ACUTE MYELOID LEUKAEMIA
     Dosage: 5 MG (3MG/M2), ONCE DAILY ON D1, D4 AND D7
     Route: 041
     Dates: start: 20080711, end: 20080718
  3. CERNEVIT [Concomitant]
     Active Substance: VITAMINS
     Dosage: UNK
     Route: 042
     Dates: start: 20080721, end: 20080728
  4. DAUNORUBICIN [Suspect]
     Active Substance: DAUNORUBICIN
     Indication: ACUTE MYELOID LEUKAEMIA
     Dosage: 100 MG (60 MG/M2), DAILY, DAY 1 TO DAY 3
     Route: 042
     Dates: start: 20080711, end: 20080713
  5. CANCIDAS [Concomitant]
     Active Substance: CASPOFUNGIN ACETATE
     Dosage: 50 MG, UNK
     Route: 041
     Dates: start: 20080724
  6. FORTUM [Concomitant]
     Active Substance: CEFTAZIDIME
     Dosage: 6 G, DAILY
     Route: 041
     Dates: start: 20080726
  7. MOPRAL [Concomitant]
     Active Substance: OMEPRAZOLE SODIUM
     Dosage: UNK
     Route: 048
     Dates: start: 20080721, end: 20080728
  8. LEXOMIL [Concomitant]
     Active Substance: BROMAZEPAM
     Dosage: UNK
     Route: 048
     Dates: start: 20080723, end: 20080728
  9. NEUPOGEN [Concomitant]
     Active Substance: FILGRASTIM
     Dosage: 300 MG, DAILY
     Route: 041
     Dates: start: 20080720
  10. VANCOMYCIN [Concomitant]
     Active Substance: VANCOMYCIN
     Dosage: 2.5 G, DAILY
     Route: 042
     Dates: start: 20080720
  11. ARACYTINE [Suspect]
     Active Substance: CYTARABINE
     Indication: ACUTE MYELOID LEUKAEMIA
     Dosage: 320 MG (200 MG/M2), DAILY, DAY 1 TO DAY 7
     Route: 042
     Dates: start: 20080711, end: 20080718
  12. PRIMPERAN [Concomitant]
     Active Substance: METOCLOPRAMIDE HYDROCHLORIDE
     Dosage: 6 DF, DAILY
     Route: 042
  13. TRACE ELEMENTS [Concomitant]
     Active Substance: UNSPECIFIED INGREDIENT
     Dosage: UNK
     Route: 042
     Dates: start: 20080721, end: 20080728
  14. AMIKACIN [Concomitant]
     Active Substance: AMIKACIN
     Dosage: 1 G, 1X/DAY
     Route: 041
     Dates: start: 20080726

REACTIONS (1)
  - Haemorrhagic stroke [Fatal]

NARRATIVE: CASE EVENT DATE: 20080728
